FAERS Safety Report 4879352-4 (Version None)
Quarter: 2006Q1

REPORT INFORMATION
  Report Type: 
  Country: None (occurrence: None)
  Receive Date: 20060112
  Receipt Date: 20060103
  Transmission Date: 20060701
  Serious: Yes (Hospitalization)
  Sender: FDA-Public Use
  Company Number: US-MERCK-0601USA00431

PATIENT
  Age: 58 Year
  Sex: Male

DRUGS (7)
  1. ZOCOR [Suspect]
     Indication: HYPERLIPIDAEMIA
     Route: 048
     Dates: start: 20030601, end: 20041201
  2. BACLOFEN [Concomitant]
     Route: 065
  3. NEURONTIN [Concomitant]
     Route: 048
  4. METHOTREXATE [Concomitant]
     Route: 065
  5. FOLIC ACID [Concomitant]
     Route: 065
  6. AVONEX [Concomitant]
     Indication: MULTIPLE SCLEROSIS
     Route: 065
  7. TUSSIONEX [Concomitant]
     Route: 065

REACTIONS (6)
  - DEHYDRATION [None]
  - ELECTROCARDIOGRAM QT PROLONGED [None]
  - INFLUENZA LIKE ILLNESS [None]
  - MENTAL STATUS CHANGES [None]
  - RENAL FAILURE ACUTE [None]
  - RHABDOMYOLYSIS [None]
